FAERS Safety Report 4420821-9 (Version None)
Quarter: 2004Q3

REPORT INFORMATION
  Report Type: 
  Country: None (occurrence: None)
  Receive Date: 20040809
  Receipt Date: 20040609
  Transmission Date: 20050211
  Serious: No
  Sender: FDA-Public Use
  Company Number: US-GLAXOSMITHKLINE-A0513956A

PATIENT
  Age: 35 Year
  Sex: Female

DRUGS (3)
  1. PAXIL [Suspect]
     Indication: PANIC DISORDER
     Dosage: 20MG PER DAY
     Route: 048
  2. LIMBITROL [Concomitant]
  3. BIRTH CONTROL PILLS [Concomitant]
     Route: 065

REACTIONS (7)
  - AGITATION [None]
  - ANXIETY [None]
  - NERVOUSNESS [None]
  - PANIC ATTACK [None]
  - PARAESTHESIA [None]
  - TINNITUS [None]
  - WEIGHT DECREASED [None]
